FAERS Safety Report 7032145-4 (Version None)
Quarter: 2010Q4

REPORT INFORMATION
  Report Type: 
  Country: None (occurrence: None)
  Receive Date: 20101007
  Receipt Date: 20100928
  Transmission Date: 20110411
  Serious: Yes (Death)
  Sender: FDA-Public Use
  Company Number: GR-GENZYME-FLUD-1000259

PATIENT
  Age: 42 Year
  Sex: Female

DRUGS (14)
  1. FLUDARA [Suspect]
     Indication: SURGICAL PRECONDITIONING
  2. FLUDARA [Suspect]
     Indication: ACUTE MYELOID LEUKAEMIA
  3. BUSULFAN [Suspect]
     Indication: CORD BLOOD TRANSPLANT THERAPY
  4. BUSULFAN [Suspect]
     Indication: ACUTE MYELOID LEUKAEMIA
  5. MYCOPHENOLATE MOFETIL [Concomitant]
     Indication: PROPHYLAXIS AGAINST GRAFT VERSUS HOST DISEASE
  6. ACYCLOVIR SODIUM [Concomitant]
     Indication: SUPPORTIVE CARE
  7. FLUCONAZOLE [Concomitant]
     Indication: SUPPORTIVE CARE
  8. PENTAMIDINE ISETHIONATE [Concomitant]
     Indication: SUPPORTIVE CARE
     Route: 042
  9. METHYLPREDNISOLONE [Concomitant]
     Indication: ACUTE GRAFT VERSUS HOST DISEASE
  10. AMPHOTERICIN B [Concomitant]
     Indication: ANTIBIOTIC THERAPY
  11. MEROPENEM [Concomitant]
     Indication: ANTIBIOTIC THERAPY
  12. TEICOPLANIN [Concomitant]
     Indication: ANTIBIOTIC THERAPY
  13. METRONIDAZOLE [Concomitant]
     Indication: ANTIBIOTIC THERAPY
  14. CYCLOSPORINE [Concomitant]
     Indication: PROPHYLAXIS AGAINST GRAFT VERSUS HOST DISEASE

REACTIONS (1)
  - TOXOPLASMOSIS [None]
